FAERS Safety Report 6949937-X (Version None)
Quarter: 2010Q3

REPORT INFORMATION
  Report Type: 
  Country: None (occurrence: None)
  Receive Date: 20100828
  Receipt Date: 20100119
  Transmission Date: 20110219
  Serious: No
  Sender: FDA-Public Use
  Company Number: US-ABBOTT-10P-163-0620880-00

PATIENT
  Sex: Male
  Weight: 86.26 kg

DRUGS (6)
  1. NIASPAN [Suspect]
     Indication: HIGH DENSITY LIPOPROTEIN DECREASED
     Dates: start: 20091201
  2. LIPITOR [Concomitant]
     Indication: CORONARY ARTERIAL STENT INSERTION
  3. PLAVIX [Concomitant]
     Indication: CORONARY ARTERIAL STENT INSERTION
  4. ASPIRIN [Concomitant]
     Indication: PRODUCT USED FOR UNKNOWN INDICATION
     Dosage: IN THE MORNING
  5. ATENOLOL [Concomitant]
     Indication: HYPERTENSION
  6. CHLORTHALIDONE [Concomitant]
     Indication: HYPERTENSION

REACTIONS (1)
  - FLUSHING [None]
